FAERS Safety Report 24751259 (Version 1)
Quarter: 2024Q4

REPORT INFORMATION
  Report Type: Spontaneous
  Country: ES (occurrence: ES)
  Receive Date: 20241219
  Receipt Date: 20241219
  Transmission Date: 20250115
  Serious: Yes (Hospitalization)
  Sender: TEVA
  Company Number: None

PATIENT
  Age: 80 Year
  Sex: Female

DRUGS (6)
  1. CIPROFLOXACIN [Suspect]
     Active Substance: CIPROFLOXACIN
     Indication: Cystitis
     Dosage: CIPROFLOXACIN (2049A)
     Route: 048
     Dates: start: 20240928, end: 20241006
  2. IBUPROFEN [Suspect]
     Active Substance: IBUPROFEN
     Indication: Pain
     Dosage: NEOBRUFEN WITH CODEINE 400 MG/30 MG, 30 TABLETS
     Route: 048
     Dates: start: 20240807, end: 20240815
  3. METAMIZOLE [Suspect]
     Active Substance: METAMIZOLE
     Indication: Pain
     Dosage: METAMIZOLE (111A)
     Route: 048
     Dates: start: 20240813, end: 20240815
  4. AMOXICILLIN\CLAVULANATE POTASSIUM [Suspect]
     Active Substance: AMOXICILLIN\CLAVULANATE POTASSIUM
     Indication: Cystitis
     Dosage: AUGMENTINE 875 MG/125 MG, 20 TABLETS
     Route: 048
     Dates: start: 20240921, end: 20240925
  5. FUROSEMIDE [Suspect]
     Active Substance: FUROSEMIDE
     Indication: Dyspnoea
     Dosage: FUROSEMIDE (1615A)
     Route: 048
     Dates: start: 20240919, end: 20240930
  6. CEFIXIME [Suspect]
     Active Substance: CEFIXIME
     Indication: Cystitis
     Dosage: CEFIXIME (2400A)
     Route: 048
     Dates: start: 20240926, end: 20240928

REACTIONS (1)
  - Tubulointerstitial nephritis [Recovering/Resolving]

NARRATIVE: CASE EVENT DATE: 20241014
